FAERS Safety Report 18350927 (Version 3)
Quarter: 2020Q4

REPORT INFORMATION
  Report Type: Report from Study
  Country: FR (occurrence: FR)
  Receive Date: 20201006
  Receipt Date: 20201223
  Transmission Date: 20210114
  Serious: Yes (Hospitalization, Other)
  Sender: FDA-Public Use
  Company Number: FR-GILEAD-2020-0497388

PATIENT
  Age: 41 Year
  Sex: Male
  Weight: 89 kg

DRUGS (7)
  1. BICTEGRAVIR W/EMTRICITABINE/TENOFOVIR ALAFENAMIDE [Suspect]
     Active Substance: BICTEGRAVIR\EMTRICITABINE\TENOFOVIR ALAFENAMIDE
     Indication: HIV INFECTION
     Dosage: 1 DOSAGE FORM, QD
     Route: 042
     Dates: start: 20200101
  2. METRONIDAZOLE. [Concomitant]
     Active Substance: METRONIDAZOLE
     Dosage: 500 MG, TID
     Route: 065
  3. CATHINONE [Suspect]
     Active Substance: CATHINONE
     Indication: PRODUCT USED FOR UNKNOWN INDICATION
     Route: 065
  4. IMOVANE [Concomitant]
     Active Substance: ZOPICLONE
     Indication: INSOMNIA
     Dosage: 1 DOSAGE FORM, QD
     Route: 048
     Dates: start: 20200918, end: 202011
  5. BROMAZEPAM [Concomitant]
     Active Substance: BROMAZEPAM
     Indication: ANXIETY
     Dosage: 0.5 DOSAGE FORM, QD
     Route: 048
     Dates: start: 20200918, end: 202011
  6. ROCEPHINE [Concomitant]
     Active Substance: CEFTRIAXONE SODIUM
     Dosage: 1 G, QD
     Route: 065
  7. BICTEGRAVIR W/EMTRICITABINE/TENOFOVIR ALAFENAMIDE [Suspect]
     Active Substance: BICTEGRAVIR\EMTRICITABINE\TENOFOVIR ALAFENAMIDE
     Dosage: 1 DOSAGE FORM, QD
     Route: 042
     Dates: start: 20200110

REACTIONS (2)
  - Colitis [Recovering/Resolving]
  - Persecutory delusion [Recovering/Resolving]

NARRATIVE: CASE EVENT DATE: 20200916
